FAERS Safety Report 8370502-4 (Version None)
Quarter: 2012Q2

REPORT INFORMATION
  Report Type: 
  Country: None (occurrence: None)
  Receive Date: 20120518
  Receipt Date: 20120510
  Transmission Date: 20120825
  Serious: Yes (Death, Other)
  Sender: FDA-Public Use
  Company Number: US-PFIZER INC-2010131551

PATIENT
  Sex: Male
  Weight: 70.295 kg

DRUGS (3)
  1. EFFEXOR XR [Suspect]
     Indication: DEPRESSION
     Dosage: 300 MG, 1X/DAY
     Dates: end: 20080101
  2. EFFEXOR XR [Suspect]
     Indication: SUICIDAL IDEATION
  3. XANAX [Suspect]
     Indication: SLEEP DISORDER
     Dosage: 1 MG, 1X/DAY
     Dates: start: 20040101

REACTIONS (4)
  - SUICIDAL IDEATION [None]
  - OVERDOSE [None]
  - DEPRESSION [None]
  - INSOMNIA [None]
